FAERS Safety Report 16661745 (Version 1)
Quarter: 2019Q3

REPORT INFORMATION
  Report Type: Spontaneous
  Country: JP (occurrence: JP)
  Receive Date: 20190802
  Receipt Date: 20190802
  Transmission Date: 20191004
  Serious: Yes (Other)
  Sender: FDA-Public Use
  Company Number: JP-PFIZER INC-2019321138

PATIENT
  Sex: Female

DRUGS (4)
  1. EFFEXOR [Suspect]
     Active Substance: VENLAFAXINE HYDROCHLORIDE
     Dosage: 37.5 MG, 1X/DAY (IN THE MORNING)
     Dates: start: 20190701
  2. EFFEXOR [Suspect]
     Active Substance: VENLAFAXINE HYDROCHLORIDE
     Dosage: 37.5 MG, 2X/DAY (MORNING AND EVENING)
     Dates: start: 20190711
  3. CONSTAN [Concomitant]
     Dosage: 0.4 MG, 2X/DAY (MORNING AND EVENING)
     Dates: start: 20190701
  4. CONSTAN [Concomitant]
     Dosage: 0.8 MG, 1X/DAY (BEFORE BEDTIME)
     Dates: start: 2018, end: 201901

REACTIONS (3)
  - Affect lability [Unknown]
  - Arrhythmia [Unknown]
  - Palpitations [Unknown]
